FAERS Safety Report 11312030 (Version 1)
Quarter: 2015Q3

REPORT INFORMATION
  Report Type: Spontaneous
  Country: US (occurrence: None)
  Receive Date: 20150723
  Receipt Date: 20150723
  Transmission Date: 20151125
  Serious: No
  Sender: FDA-Public Use
  Company Number: SCM-3935-AE

PATIENT
  Sex: Female

DRUGS (1)
  1. SF [Suspect]
     Active Substance: SODIUM FLUORIDE
     Indication: DENTAL CARE
     Dosage: TOPICAL ON TEETH
     Route: 061
     Dates: start: 20150721

REACTIONS (1)
  - Accidental exposure to product [None]

NARRATIVE: CASE EVENT DATE: 20150721
